FAERS Safety Report 7046409-1 (Version None)
Quarter: 2010Q4

REPORT INFORMATION
  Report Type: 
  Country: None (occurrence: None)
  Receive Date: 20101014
  Receipt Date: 20100628
  Transmission Date: 20110411
  Serious: No
  Sender: FDA-Public Use
  Company Number: US-PFIZER INC-2010080720

PATIENT
  Sex: Male
  Weight: 106.58 kg

DRUGS (4)
  1. GABAPENTIN [Suspect]
     Indication: INTERVERTEBRAL DISC DEGENERATION
     Dosage: 600 MG, 3X/DAY
     Route: 048
     Dates: start: 20100301, end: 20100622
  2. ZOLOFT [Suspect]
     Indication: DEPRESSION
     Dosage: UNK
     Route: 048
  3. LISINOPRIL [Suspect]
     Indication: HYPERTENSION
     Dosage: 12.5 MG, 1X/DAY
     Route: 048
  4. SYNTHROID [Concomitant]
     Indication: HYPOTHYROIDISM
     Dosage: 175 UG, 1X/DAY
     Route: 048

REACTIONS (1)
  - DRUG SCREEN FALSE POSITIVE [None]
